FAERS Safety Report 7549435-9 (Version None)
Quarter: 2011Q2

REPORT INFORMATION
  Report Type: 
  Country: None (occurrence: None)
  Receive Date: 20110615
  Receipt Date: 20040826
  Transmission Date: 20111010
  Serious: Yes (Other)
  Sender: FDA-Public Use
  Company Number: PHFR2004GB02659

PATIENT
  Sex: Female

DRUGS (6)
  1. SCOPOLAMINE [Concomitant]
     Dosage: 20 UKN, BID
     Route: 065
  2. DEPAKOTE [Concomitant]
     Dosage: 1 UKN, BID
     Route: 065
  3. VENLAFAXINE [Concomitant]
     Dosage: 225 MG, NOCTE
  4. PROCYCLIDINE HYDROCHLORIDE 2MG TAB [Concomitant]
     Dosage: 5 MG, BID
     Route: 065
  5. VENLAFAXINE [Concomitant]
     Dosage: 150 MG, AM
     Route: 065
  6. CLOZAPINE [Suspect]
     Indication: SCHIZOPHRENIA
     Dosage: 300 MG,NOCTE
     Route: 048
     Dates: start: 20030905

REACTIONS (1)
  - MEAN CELL VOLUME INCREASED [None]
